FAERS Safety Report 15301259 (Version 1)
Quarter: 2018Q3

REPORT INFORMATION
  Report Type: Spontaneous
  Country: US (occurrence: US)
  Receive Date: 20180821
  Receipt Date: 20180821
  Transmission Date: 20181010
  Serious: Yes (Other)
  Sender: FDA-Public Use
  Company Number: US-PFIZER INC-2018335010

PATIENT
  Age: 75 Year
  Sex: Female

DRUGS (2)
  1. VFEND [Suspect]
     Active Substance: VORICONAZOLE
     Dosage: 200 MG, UNK
  2. VFEND [Suspect]
     Active Substance: VORICONAZOLE
     Dosage: 50 MG, UNK

REACTIONS (1)
  - Leukaemia [Unknown]
